FAERS Safety Report 23273257 (Version 1)
Quarter: 2023Q4

REPORT INFORMATION
  Report Type: Spontaneous
  Country: US (occurrence: None)
  Receive Date: 20231207
  Receipt Date: 20231207
  Transmission Date: 20240109
  Serious: Yes (unspecified)
  Sender: FDA-Public Use
  Company Number: None

PATIENT
  Age: 80 Year
  Sex: Female

DRUGS (1)
  1. SKYRIZI [Suspect]
     Active Substance: RISANKIZUMAB-RZAA
     Dosage: OTHER FREQUENCY : EVERY 12;?
     Dates: start: 20231128

REACTIONS (2)
  - Complex regional pain syndrome [None]
  - Psoriasis [None]

NARRATIVE: CASE EVENT DATE: 20231205
